FAERS Safety Report 17166120 (Version 3)
Quarter: 2020Q2

REPORT INFORMATION
  Report Type: Spontaneous
  Country: US (occurrence: US)
  Receive Date: 20191217
  Receipt Date: 20200604
  Transmission Date: 20200713
  Serious: No
  Sender: FDA-Public Use
  Company Number: US-SA-2019SA346858

PATIENT

DRUGS (1)
  1. DUPIXENT [Suspect]
     Active Substance: DUPILUMAB
     Indication: DERMATITIS ATOPIC
     Dosage: 300 MG, QOW
     Route: 058
     Dates: start: 20190515

REACTIONS (4)
  - Lacrimation increased [Unknown]
  - Vision blurred [Unknown]
  - Rebound eczema [Unknown]
  - Product dose omission [Unknown]

NARRATIVE: CASE EVENT DATE: 20191210
